FAERS Safety Report 14560934 (Version 1)
Quarter: 2018Q1

REPORT INFORMATION
  Report Type: Spontaneous
  Country: US (occurrence: US)
  Receive Date: 20180222
  Receipt Date: 20180222
  Transmission Date: 20180509
  Serious: Yes (Other)
  Sender: FDA-Public Use
  Company Number: US-AMGEN-USASP2018022241

PATIENT
  Age: 66 Year
  Sex: Female

DRUGS (1)
  1. PARSABIV [Suspect]
     Active Substance: ETELCALCETIDE HYDROCHLORIDE
     Indication: HYPERPARATHYROIDISM SECONDARY
     Dosage: 5 MG, 3 TIMES/WK
     Route: 065
     Dates: start: 20180115, end: 20180207

REACTIONS (5)
  - Vomiting [Unknown]
  - Malaise [Unknown]
  - Palpitations [Unknown]
  - Nausea [Unknown]
  - Cardiac flutter [Unknown]
